FAERS Safety Report 4961113-9 (Version None)
Quarter: 2006Q1

REPORT INFORMATION
  Report Type: 
  Country: None (occurrence: None)
  Receive Date: 20060328
  Receipt Date: 20060315
  Transmission Date: 20060701
  Serious: Yes (Other)
  Sender: FDA-Public Use
  Company Number: 2006034272

PATIENT
  Age: 76 Year
  Sex: Male

DRUGS (10)
  1. AZITHROMYCIN [Suspect]
     Indication: ILL-DEFINED DISORDER
     Dosage: 500 MG, ORAL
     Route: 048
     Dates: start: 20040130, end: 20040201
  2. UNASYN [Suspect]
     Indication: ILL-DEFINED DISORDER
     Dosage: 3 GRAM, INTRAVENOUS
     Route: 042
     Dates: start: 20040204, end: 20040209
  3. LEVOFLOXACIN [Suspect]
     Indication: ILL-DEFINED DISORDER
     Dosage: 400 MG, ORAL
     Route: 048
     Dates: start: 20031225, end: 20031231
  4. AMBROXOL HYDROCHLORIDE (AMBROXOL HYDROCHLORIDE) [Suspect]
     Indication: ILL-DEFINED DISORDER
     Dosage: 45 MG, ORAL
     Route: 048
     Dates: start: 20040130, end: 20040507
  5. SERRAPEPTASE (SERRAPEPTASE) [Suspect]
     Indication: ILL-DEFINED DISORDER
     Dosage: 15 MG, ORAL
     Route: 048
     Dates: start: 20040130, end: 20040507
  6. FUDOSTEINE (FUDOSTEINE) [Suspect]
     Indication: ILL-DEFINED DISORDER
     Dosage: 400 MG, ORAL
     Route: 048
     Dates: start: 20040130, end: 20040507
  7. DIBEKACIN SULFATE (DIBEKACIN SULFATE) [Concomitant]
  8. METILDIGOXIN (METILDIGOXIN) [Concomitant]
  9. LOXOPROFEN (LOXOPROFEN) [Concomitant]
  10. TEPRENONE (TEPRENONE) [Concomitant]

REACTIONS (3)
  - CHOLESTASIS [None]
  - IMMUNE SYSTEM DISORDER [None]
  - LIVER DISORDER [None]
